FAERS Safety Report 10395384 (Version 8)
Quarter: 2015Q2

REPORT INFORMATION
  Report Type: Report from Study
  Country: US (occurrence: US)
  Receive Date: 20140820
  Receipt Date: 20150514
  Transmission Date: 20150821
  Serious: Yes (Hospitalization, Congenital Anomaly)
  Sender: FDA-Public Use
  Company Number: US-ROCHE-1391370

PATIENT
  Age: 0 Day
  Sex: Male

DRUGS (5)
  1. IBUPROFEN. [Concomitant]
     Active Substance: IBUPROFEN
     Indication: PYREXIA
  2. AMOXIL [Concomitant]
     Active Substance: AMOXICILLIN
  3. ZYRTEC [Concomitant]
     Active Substance: CETIRIZINE HYDROCHLORIDE
     Indication: HYPERSENSITIVITY
     Route: 048
  4. OMALIZUMAB [Suspect]
     Active Substance: OMALIZUMAB
     Route: 063
  5. OMALIZUMAB [Suspect]
     Active Substance: OMALIZUMAB
     Indication: PRODUCT USED FOR UNKNOWN INDICATION
     Route: 064
     Dates: start: 201011

REACTIONS (18)
  - Viral infection [Unknown]
  - Gastrooesophageal reflux disease [Not Recovered/Not Resolved]
  - Inguinal hernia [Recovered/Resolved]
  - Cryptorchism [Recovered/Resolved]
  - Conjunctivitis [Unknown]
  - Bronchospasm [Recovered/Resolved]
  - Exposure during breast feeding [Unknown]
  - Conjunctivitis [Unknown]
  - Buried penis syndrome [Recovered/Resolved]
  - Urticaria chronic [Not Recovered/Not Resolved]
  - Jaundice neonatal [Recovered/Resolved]
  - Foetal exposure during pregnancy [Unknown]
  - Upper respiratory tract infection [Unknown]
  - Bronchiolitis [Unknown]
  - Ear infection [Unknown]
  - Respiratory disorder [Not Recovered/Not Resolved]
  - Umbilical granuloma [Unknown]
  - Tooth injury [Unknown]

NARRATIVE: CASE EVENT DATE: 20140417
